FAERS Safety Report 19876782 (Version 1)
Quarter: 2021Q3

REPORT INFORMATION
  Report Type: Spontaneous
  Country: CA (occurrence: CA)
  Receive Date: 20210924
  Receipt Date: 20210924
  Transmission Date: 20211014
  Serious: Yes (Death)
  Sender: FDA-Public Use
  Company Number: CA-TEVA-2021-CA-1956210

PATIENT
  Age: 28 Year
  Sex: Female
  Weight: 122 kg

DRUGS (6)
  1. CLOZAPINE. [Concomitant]
     Active Substance: CLOZAPINE
  2. QUETIAPINE. [Concomitant]
     Active Substance: QUETIAPINE
  3. FENTANYL. [Suspect]
     Active Substance: FENTANYL
     Route: 065
  4. DIPHENHYDRAMINE. [Concomitant]
     Active Substance: DIPHENHYDRAMINE
  5. METHAMPHETAMINE [Concomitant]
     Active Substance: METHAMPHETAMINE
  6. TOPIRAMATE. [Concomitant]
     Active Substance: TOPIRAMATE

REACTIONS (3)
  - Toxicity to various agents [Fatal]
  - Opiates positive [Fatal]
  - Postmortem blood drug level increased [Fatal]
